FAERS Safety Report 8381898-1 (Version None)
Quarter: 2012Q2

REPORT INFORMATION
  Report Type: 
  Country: None (occurrence: None)
  Receive Date: 20120523
  Receipt Date: 20120523
  Transmission Date: 20120825
  Serious: Yes (Other)
  Sender: FDA-Public Use
  Company Number: None

PATIENT
  Age: 64 Year
  Sex: Male
  Weight: 79.3795 kg

DRUGS (1)
  1. AVELOX [Suspect]
     Indication: COUGH
     Dosage: 400 MG 1 TABLET/DAILY
     Dates: start: 20120317

REACTIONS (3)
  - RASH ERYTHEMATOUS [None]
  - DRUG INEFFECTIVE [None]
  - RASH PUSTULAR [None]
